FAERS Safety Report 5136725-2 (Version None)
Quarter: 2006Q4

REPORT INFORMATION
  Report Type: 
  Country: None (occurrence: None)
  Receive Date: 20061023
  Receipt Date: 20061006
  Transmission Date: 20070319
  Serious: Yes (Life-Threatening, Hospitalization)
  Sender: FDA-Public Use
  Company Number: DSA_28832_2006

PATIENT
  Age: 27 Year
  Sex: Male

DRUGS (1)
  1. TAVOR [Suspect]
     Dosage: 175 MG ONCE PO
     Route: 048
     Dates: start: 20060926, end: 20060926

REACTIONS (4)
  - INTENTIONAL OVERDOSE [None]
  - SOMNOLENCE [None]
  - SUICIDE ATTEMPT [None]
  - TACHYCARDIA [None]
